FAERS Safety Report 9288674 (Version 1)
Quarter: 2012Q4

REPORT INFORMATION
  Report Type: Spontaneous
  Country: JP (occurrence: None)
  Receive Date: 20120924
  Receipt Date: 20120924
  Transmission Date: 20130627
  Serious: Yes (Other)
  Sender: FDA-Public Use
  Company Number: 2012JP006172

PATIENT
  Age: 47 Year
  Sex: Male
  Weight: 75 kg

DRUGS (16)
  1. ALOXI [Suspect]
     Indication: PROPHYLAXIS OF NAUSEA AND VOMITING
     Route: 042
     Dates: start: 20120117, end: 20120131
  2. LEVOFOLINATE [Suspect]
     Indication: COLORECTAL CANCER
     Dates: start: 20120117, end: 20120131
  3. 5-FU [Suspect]
     Indication: COLORECTAL CANCER
     Dates: start: 20120117, end: 20120131
  4. ELPLAT [Suspect]
     Indication: COLORECTAL CANCER
     Dates: start: 20120117, end: 20120117
  5. CAMPTO [Suspect]
     Indication: COLORECTAL CANCER
     Dates: start: 20120131, end: 20120131
  6. ERBITUX [Suspect]
     Indication: COLORECTAL CANCER
     Dates: start: 20120117, end: 20120131
  7. DEXART (DEXAMETHASONE SODIUM PHOSPHATE) [Concomitant]
  8. MAGNESIUM SULFATE (MAGNESIUM SULFATE) [Concomitant]
  9. VENA (DIPHENHYDRAMINE HYDROCHLORIDE) [Concomitant]
  10. BLOPRESS (CANDESARTAN CILEXETIL) [Concomitant]
  11. ADALAT CRONO (NIFEDIPINE) [Concomitant]
  12. LYRICA (PREGABALIN) [Concomitant]
  13. LOXONIN (LOXOPROFEN SODIUM) [Concomitant]
  14. SELBEX (TEPRENONE) [Concomitant]
  15. MINOCYCLINE HYDROCHLORIDE (MINOCYCLINE HYDROCHLORIDE) [Concomitant]
  16. JUZENTAIHOTO (HERBAL EXTRACT NOS) [Concomitant]

REACTIONS (3)
  - Respiratory disorder [None]
  - Anaphylactoid reaction [None]
  - Infusion related reaction [None]
